FAERS Safety Report 10184253 (Version 1)
Quarter: 2014Q2

REPORT INFORMATION
  Report Type: Spontaneous
  Country: US (occurrence: US)
  Receive Date: 20140520
  Receipt Date: 20140520
  Transmission Date: 20141212
  Serious: No
  Sender: FDA-Public Use
  Company Number: US-ASTRAZENECA-2013SE86463

PATIENT
  Age: 60 Year
  Sex: Male
  Weight: 99.8 kg

DRUGS (4)
  1. RHINOCORT AQUA [Suspect]
     Indication: HYPERSENSITIVITY
     Dosage: 2 SPRAYS PER NOS DAILY
     Route: 045
  2. RHINOCORT AQUA [Suspect]
     Indication: HYPERSENSITIVITY
     Route: 045
  3. MOTRIN [Concomitant]
     Indication: ARTHRITIS
     Dosage: 2 PILLS 100MG BID
     Route: 048
  4. FLONASE [Concomitant]

REACTIONS (4)
  - Nasal congestion [Recovered/Resolved]
  - Cough [Recovered/Resolved]
  - Rhinorrhoea [Recovered/Resolved]
  - Intentional product misuse [Unknown]
